FAERS Safety Report 8020001-4 (Version None)
Quarter: 2012Q1

REPORT INFORMATION
  Report Type: 
  Country: None (occurrence: None)
  Receive Date: 20120103
  Receipt Date: 20111229
  Transmission Date: 20120608
  Serious: Yes (Other)
  Sender: FDA-Public Use
  Company Number: PHHY2011GB113281

PATIENT
  Age: 48 Year
  Sex: Male
  Weight: 103 kg

DRUGS (6)
  1. RANITIDINE [Concomitant]
     Indication: GASTROOESOPHAGEAL REFLUX DISEASE
     Dosage: 150 MG, BID
     Route: 048
     Dates: start: 20080101
  2. VALPROIC ACID [Concomitant]
     Indication: EPILEPSY
     Dosage: 300 MG, BID
     Route: 048
     Dates: start: 20000101
  3. SULFASALAZINE [Concomitant]
     Indication: RHEUMATOID ARTHRITIS
     Dosage: 1 G, BID
     Route: 048
     Dates: start: 20110201
  4. TEGRETOL [Concomitant]
     Indication: EPILEPSY
     Dosage: 600 MG, BID
     Route: 048
     Dates: start: 19990101
  5. GABAPENTIN [Suspect]
     Indication: TREMOR
     Dosage: 1800 MG, QD
     Route: 048
     Dates: start: 20110913, end: 20111130
  6. ACETAMINOPHEN [Concomitant]
     Indication: PAIN
     Dosage: 1 G, QID
     Route: 048
     Dates: start: 20000101

REACTIONS (1)
  - NEUTROPENIA [None]
